FAERS Safety Report 24719047 (Version 1)
Quarter: 2024Q4

REPORT INFORMATION
  Report Type: Report from Study
  Country: EG (occurrence: EG)
  Receive Date: 20241210
  Receipt Date: 20241210
  Transmission Date: 20250115
  Serious: Yes (Hospitalization, Other)
  Sender: ABBVIE
  Company Number: EG-ABBVIE-5604173

PATIENT
  Age: 51 Year
  Sex: Male
  Weight: 82 kg

DRUGS (13)
  1. HUMIRA [Suspect]
     Active Substance: ADALIMUMAB
     Indication: Psoriatic arthropathy
     Dosage: STOP DATE- ONE YEAR LATER
     Route: 058
     Dates: start: 2017, end: 2018
  2. RINVOQ [Suspect]
     Active Substance: UPADACITINIB
     Indication: Psoriatic arthropathy
     Dosage: ONE TABLET?START DATE TEXT: AT THE END OF 2020?FORM STRENGTH: 15 MILLIGRAM
     Route: 048
     Dates: start: 2020
  3. RINVOQ [Suspect]
     Active Substance: UPADACITINIB
     Indication: Psoriatic arthropathy
     Dosage: 1 TABLET?FORM STRENGTH: 15 MILLIGRAM?STOP DATE TEXT: END OF JULY 2024
     Route: 048
     Dates: start: 202312, end: 202407
  4. METOPROLOL [Concomitant]
     Active Substance: METOPROLOL
     Indication: Hypertension
     Dosage: - FORM STRENGTH: 100MG
  5. Vonopravin [Concomitant]
     Indication: Gastrooesophageal reflux disease
     Dosage: 1 TABLET?FORM STRENGTH: 20 MG
  6. NEXIUM [Concomitant]
     Active Substance: ESOMEPRAZOLE MAGNESIUM
     Indication: Gastrooesophageal reflux disease
     Dates: start: 2000
  7. PLAVIX [Concomitant]
     Active Substance: CLOPIDOGREL BISULFATE
     Indication: Hypertension
     Dates: start: 2001
  8. BISOPROLOL FUMARATE [Concomitant]
     Active Substance: BISOPROLOL FUMARATE
     Indication: Hypertension
     Dosage: CONCOR PLUS 5 MG
  9. QUVASC [Concomitant]
     Indication: Hypertension
  10. LIPITOR [Concomitant]
     Active Substance: ATORVASTATIN CALCIUM
     Indication: Product used for unknown indication
  11. ALLOPURINOL [Concomitant]
     Active Substance: ALLOPURINOL
     Indication: Blood uric acid
  12. OLMESARTAN MEDOXOMIL [Concomitant]
     Active Substance: OLMESARTAN MEDOXOMIL
     Indication: Hypertension
  13. TAMSULOSIN HYDROCHLORIDE [Concomitant]
     Active Substance: TAMSULOSIN HYDROCHLORIDE
     Indication: Prostatic disorder

REACTIONS (11)
  - Coronary arterial stent insertion [Recovered/Resolved]
  - Myocardial infarction [Recovered/Resolved]
  - Cardiac disorder [Not Recovered/Not Resolved]
  - Nasopharyngitis [Recovered/Resolved]
  - Drug ineffective [Recovered/Resolved]
  - Thrombosis [Recovered/Resolved]
  - Stress [Unknown]
  - Hypertension [Recovering/Resolving]
  - Blood cholesterol increased [Not Recovered/Not Resolved]
  - Therapeutic product effect decreased [Unknown]
  - Polyarthritis [Unknown]

NARRATIVE: CASE EVENT DATE: 20170101
